FAERS Safety Report 5417745-7 (Version None)
Quarter: 2007Q3

REPORT INFORMATION
  Report Type: 
  Country: None (occurrence: None)
  Receive Date: 20070815
  Receipt Date: 20070815
  Transmission Date: 20080115
  Serious: Yes (Hospitalization)
  Sender: FDA-Public Use
  Company Number: None

PATIENT
  Sex: Male

DRUGS (3)
  1. ETODOLAC [Suspect]
     Indication: NECK PAIN
     Dosage: PO  (THERAPY DATES: PRIOR TO ADMISSION)
     Route: 048
  2. NARDIL [Concomitant]
  3. VALIUM [Concomitant]

REACTIONS (1)
  - RASH PRURITIC [None]
